FAERS Safety Report 8248078-1 (Version None)
Quarter: 2012Q1

REPORT INFORMATION
  Report Type: 
  Country: None (occurrence: None)
  Receive Date: 20120330
  Receipt Date: 20120323
  Transmission Date: 20120608
  Serious: Yes (Hospitalization)
  Sender: FDA-Public Use
  Company Number: US-UCBSA-054111

PATIENT
  Age: 52 Year
  Sex: Female
  Weight: 47 kg

DRUGS (7)
  1. DARVOCET-N 50 [Concomitant]
     Indication: HEADACHE
     Route: 048
     Dates: start: 20060124
  2. PHENERGAN HCL [Concomitant]
     Indication: NAUSEA
     Route: 048
     Dates: start: 20050421
  3. LIBRAX [Concomitant]
     Indication: IRRITABLE BOWEL SYNDROME
     Route: 048
     Dates: start: 20040127
  4. GOODYS POWDER [Concomitant]
     Indication: HEADACHE
     Dosage: 2 TABS
     Route: 048
     Dates: start: 20020101
  5. CARAFATE [Concomitant]
     Indication: GASTRITIS
     Route: 048
     Dates: start: 20060124
  6. CDP870 [Suspect]
     Indication: CROHN'S DISEASE
     Dosage: 400 MG
     Route: 058
     Dates: start: 20041101
  7. DELESTROGEN [Concomitant]
     Indication: HORMONE THERAPY
     Route: 030
     Dates: start: 20050411

REACTIONS (1)
  - BRONCHOPNEUMONIA [None]
